FAERS Safety Report 10311483 (Version 1)
Quarter: 2014Q3

REPORT INFORMATION
  Report Type: Spontaneous
  Country: JM (occurrence: None)
  Receive Date: 20140715
  Receipt Date: 20140715
  Transmission Date: 20150326
  Serious: Yes (Hospitalization)
  Sender: FDA-Public Use
  Company Number: SYM-2014-22948

PATIENT
  Age: 31 Year
  Sex: Female

DRUGS (1)
  1. WELLBUTRIN XL [Suspect]
     Active Substance: BUPROPION HYDROCHLORIDE
     Indication: MAJOR DEPRESSION
     Route: 048
     Dates: start: 20140623

REACTIONS (8)
  - Restlessness [None]
  - Crying [None]
  - Anxiety [None]
  - Nervousness [None]
  - Conversion disorder [None]
  - Emotional distress [None]
  - Fear [None]
  - Screaming [None]
